FAERS Safety Report 8537076 (Version 3)
Quarter: 2013Q1

REPORT INFORMATION
  Report Type: Spontaneous
  Country: US (occurrence: None)
  Receive Date: 20120411
  Receipt Date: 20121217
  Transmission Date: 20140127
  Serious: Yes (Hospitalization, Other)
  Sender: FDA-Public Use
  Company Number: 2012031823

PATIENT
  Age: 71 Year
  Sex: Female
  Weight: 78.47 kg

DRUGS (25)
  1. HIZENTRA [Suspect]
     Indication: IMMUNODEFICIENCY COMMON VARIABLE
     Dosage: IN 2-3 SITES OVER 1-2 HOURS
     Route: 058
     Dates: start: 20120217
  2. CARDIZEM [Concomitant]
  3. FOLIC ACID [Concomitant]
  4. OXYGEN (OXYGEN) [Concomitant]
  5. SINGULAIR [Concomitant]
  6. LOSARTAN POTASSIUM [Concomitant]
  7. ISOSORBIDE (ISOSORBIDE) [Concomitant]
  8. LASIX [Concomitant]
  9. NEURONTIN [Concomitant]
  10. MUPIROCIN [Concomitant]
  11. LORAZEPAM [Concomitant]
  12. ACETAMINOPHEN (PARACETAMOL) [Concomitant]
  13. HYDROXYZINE [Concomitant]
  14. MULTIVITAMIN (DAILY MULTIVITAMIN) [Concomitant]
  15. DIPHENHYDRAMINE HYDROCHLORIDE [Concomitant]
  16. LIDOCAINE /PRILOCAINE (EMLA/00675501/) [Concomitant]
  17. EPIPEN [Concomitant]
  18. POTASSIUM (POTASSIUM) [Concomitant]
  19. CALCIUM CARBONATE [Concomitant]
  20. LEVEMIR (INSULIN DETEMIR) [Concomitant]
  21. PULMICORT (BUDESONIDE) [Concomitant]
  22. LEVOTHYROXINE (LEVOTHYROXINE) [Concomitant]
  23. CALCIUM WITH VITAMIN D (CALCIUM WITH VITAMIN D) [Concomitant]
  24. DUONEB (COMBIVENT /01261001/) [Concomitant]
  25. PROTONIX (PANTOPRAZOLE) [Concomitant]

REACTIONS (3)
  - Respiratory tract infection [None]
  - Pruritus [None]
  - Rash erythematous [None]
